FAERS Safety Report 8718491 (Version 3)
Quarter: 2012Q4

REPORT INFORMATION
  Report Type: 
  Country: JP (occurrence: JP)
  Receive Date: 20120810
  Receipt Date: 20120913
  Transmission Date: 20130627
  Serious: Yes (Hospitalization)
  Sender: FDA-Public Use
  Company Number: JP-ABBOTT-12P-087-0962691-00

PATIENT
  Age: 61 Year
  Sex: Female
  Weight: 62.5 kg

DRUGS (2)
  1. TRICOR [Suspect]
     Indication: HYPERLIPIDAEMIA
     Route: 048
     Dates: start: 20120517, end: 20120711
  2. AMLODIPINE BESILATE [Concomitant]
     Indication: HYPERTENSION
     Route: 048

REACTIONS (2)
  - Liver disorder [Recovered/Resolved]
  - Chromaturia [Unknown]
